FAERS Safety Report 16859632 (Version 3)
Quarter: 2019Q4

REPORT INFORMATION
  Report Type: Spontaneous
  Country: AR (occurrence: AR)
  Receive Date: 20190927
  Receipt Date: 20191113
  Transmission Date: 20200122
  Serious: Yes (Hospitalization, Other)
  Sender: FDA-Public Use
  Company Number: AR-B.I. PHARMACEUTICALS,INC./RIDGEFIELD-2019-MI-104215

PATIENT
  Age: 76 Year
  Sex: Male

DRUGS (2)
  1. OFEV [Suspect]
     Active Substance: NINTEDANIB
     Indication: IDIOPATHIC PULMONARY FIBROSIS
     Route: 048
     Dates: start: 20190601
  2. UMECLIDINIUM;VILANTEROL [Concomitant]
     Indication: EMPHYSEMA
     Route: 065

REACTIONS (6)
  - Pulmonary mass [Recovered/Resolved]
  - Weight decreased [Recovered/Resolved]
  - Supraventricular tachycardia [Recovered/Resolved]
  - Decreased appetite [Unknown]
  - Pneumonia [Recovered/Resolved]
  - Sepsis [Recovered/Resolved]
